FAERS Safety Report 15821227 (Version 1)
Quarter: 2019Q1

REPORT INFORMATION
  Report Type: Report from Study
  Country: US (occurrence: US)
  Receive Date: 20190114
  Receipt Date: 20190114
  Transmission Date: 20190417
  Serious: Yes (Death, Other)
  Sender: FDA-Public Use
  Company Number: US-JNJFOC-20180728874

PATIENT
  Age: 77 Year
  Sex: Male

DRUGS (18)
  1. IMBRUVICA [Suspect]
     Active Substance: IBRUTINIB
     Indication: MANTLE CELL LYMPHOMA
     Route: 048
     Dates: start: 20180606
  2. IMBRUVICA [Suspect]
     Active Substance: IBRUTINIB
     Indication: MANTLE CELL LYMPHOMA
     Route: 048
     Dates: start: 20180607, end: 20181205
  3. IMBRUVICA [Suspect]
     Active Substance: IBRUTINIB
     Indication: HAIRY CELL LEUKAEMIA
     Route: 048
     Dates: start: 20180607, end: 20181205
  4. IMBRUVICA [Suspect]
     Active Substance: IBRUTINIB
     Indication: MANTLE CELL LYMPHOMA
     Route: 048
     Dates: start: 20181025
  5. IMBRUVICA [Suspect]
     Active Substance: IBRUTINIB
     Indication: HAIRY CELL LEUKAEMIA
     Route: 048
     Dates: start: 20181121
  6. TAMULOSIN [Concomitant]
     Active Substance: TAMSULOSIN
  7. LASIX [Concomitant]
     Active Substance: FUROSEMIDE
  8. IMBRUVICA [Suspect]
     Active Substance: IBRUTINIB
     Indication: HAIRY CELL LEUKAEMIA
     Route: 048
     Dates: start: 20180926
  9. IMBRUVICA [Suspect]
     Active Substance: IBRUTINIB
     Indication: MANTLE CELL LYMPHOMA
     Route: 048
     Dates: start: 20181121
  10. IMBRUVICA [Suspect]
     Active Substance: IBRUTINIB
     Indication: HAIRY CELL LEUKAEMIA
     Route: 048
     Dates: start: 20180827
  11. CREON [Concomitant]
     Active Substance: PANCRELIPASE AMYLASE\PANCRELIPASE LIPASE\PANCRELIPASE PROTEASE
  12. VALACYCLOVIR [Concomitant]
     Active Substance: VALACYCLOVIR HYDROCHLORIDE
  13. DUREZOL [Concomitant]
     Active Substance: DIFLUPREDNATE
  14. IMBRUVICA [Suspect]
     Active Substance: IBRUTINIB
     Indication: MANTLE CELL LYMPHOMA
     Route: 048
     Dates: start: 20180926
  15. IMBRUVICA [Suspect]
     Active Substance: IBRUTINIB
     Indication: HAIRY CELL LEUKAEMIA
     Route: 048
     Dates: start: 20181025
  16. ENSURE [Concomitant]
     Active Substance: AMINO ACIDS\DEXTROSE\ELECTROLYTES NOS\SOYBEAN OIL\VITAMINS
  17. IMBRUVICA [Suspect]
     Active Substance: IBRUTINIB
     Indication: HAIRY CELL LEUKAEMIA
     Route: 048
     Dates: start: 20180606
  18. IMBRUVICA [Suspect]
     Active Substance: IBRUTINIB
     Indication: MANTLE CELL LYMPHOMA
     Route: 048
     Dates: start: 20180827

REACTIONS (36)
  - Pancreatic failure [Not Recovered/Not Resolved]
  - Pyrexia [Not Recovered/Not Resolved]
  - Epistaxis [Recovering/Resolving]
  - Dehydration [Unknown]
  - Drug ineffective [Unknown]
  - Death [Fatal]
  - Nocturia [Not Recovered/Not Resolved]
  - Muscle spasms [Recovered/Resolved]
  - Contusion [Not Recovered/Not Resolved]
  - Abdominal discomfort [Not Recovered/Not Resolved]
  - Night sweats [Not Recovered/Not Resolved]
  - Tongue biting [Not Recovered/Not Resolved]
  - Swelling [Not Recovered/Not Resolved]
  - Insomnia [Unknown]
  - Nervousness [Recovered/Resolved]
  - Weight increased [Recovered/Resolved]
  - Hyperhidrosis [Unknown]
  - Malaise [Not Recovered/Not Resolved]
  - Depression [Not Recovered/Not Resolved]
  - Asthenia [Not Recovered/Not Resolved]
  - Increased tendency to bruise [Unknown]
  - Abdominal pain [Recovering/Resolving]
  - Lymphadenopathy [Unknown]
  - Swollen tongue [Not Recovered/Not Resolved]
  - Arthropod bite [Not Recovered/Not Resolved]
  - Generalised oedema [Not Recovered/Not Resolved]
  - Neoplasm malignant [Recovering/Resolving]
  - Urinary retention [Not Recovered/Not Resolved]
  - Immunosuppression [Unknown]
  - Injury [Not Recovered/Not Resolved]
  - Somnolence [Not Recovered/Not Resolved]
  - Peripheral swelling [Not Recovered/Not Resolved]
  - Splenomegaly [Not Recovered/Not Resolved]
  - Amnesia [Unknown]
  - Fatigue [Not Recovered/Not Resolved]
  - Bone pain [Unknown]

NARRATIVE: CASE EVENT DATE: 20180626
